FAERS Safety Report 4935097-3 (Version None)
Quarter: 2006Q1

REPORT INFORMATION
  Report Type: 
  Country: None (occurrence: None)
  Receive Date: 20060302
  Receipt Date: 20060221
  Transmission Date: 20060701
  Serious: Yes (Life-Threatening, Hospitalization, Disabling)
  Sender: FDA-Public Use
  Company Number: 2006025697

PATIENT
  Age: 77 Year
  Sex: Male
  Weight: 74.8435 kg

DRUGS (9)
  1. BEXTRA [Suspect]
     Indication: ARTHRITIS
     Dosage: 10 MG (10 MG, 1 IN 1 D), ORAL
     Route: 048
     Dates: start: 20040101, end: 20040101
  2. PREVACID [Concomitant]
  3. COZAAR [Concomitant]
  4. LASIX [Concomitant]
  5. POTASSIUM (POTASSIUM) [Concomitant]
  6. ASPIRIN [Concomitant]
  7. COREG [Concomitant]
  8. WARFARIN SODIUM [Concomitant]
  9. LANOXIN [Concomitant]

REACTIONS (5)
  - ABASIA [None]
  - BEDRIDDEN [None]
  - BRAIN STEM THROMBOSIS [None]
  - CEREBRAL THROMBOSIS [None]
  - COMA [None]
